FAERS Safety Report 20477109 (Version 1)
Quarter: 2022Q1

REPORT INFORMATION
  Report Type: Spontaneous
  Country: SE (occurrence: SE)
  Receive Date: 20220215
  Receipt Date: 20220215
  Transmission Date: 20220423
  Serious: Yes (Other)
  Sender: FDA-Public Use
  Company Number: SE-SA-SAC20220214000185

PATIENT

DRUGS (1)
  1. LIBTAYO [Suspect]
     Active Substance: CEMIPLIMAB-RWLC
     Indication: Product used for unknown indication
     Dates: start: 20220124

REACTIONS (12)
  - Oedema peripheral [Unknown]
  - Electrocardiogram QRS complex [Unknown]
  - Bundle branch block right [Unknown]
  - Troponin abnormal [Unknown]
  - Blood creatine phosphokinase MB abnormal [Unknown]
  - Brain natriuretic peptide abnormal [Unknown]
  - Hepatitis [Unknown]
  - Myasthenia gravis [Unknown]
  - Myocarditis [Unknown]
  - Immune system disorder [Unknown]
  - Myopathy [Unknown]
  - Myositis [Unknown]
